FAERS Safety Report 8624224-2 (Version None)
Quarter: 2012Q3

REPORT INFORMATION
  Report Type: 
  Country: None (occurrence: None)
  Receive Date: 20120827
  Receipt Date: 20120824
  Transmission Date: 20120928
  Serious: Yes (Death)
  Sender: FDA-Public Use
  Company Number: GB-JNJFOC-20120607369

PATIENT
  Sex: Female
  Weight: 30 kg

DRUGS (8)
  1. MELATONIN [Concomitant]
     Indication: POOR QUALITY SLEEP
     Route: 048
     Dates: start: 20100910
  2. METHYLPHENIDATE [Concomitant]
     Route: 048
     Dates: start: 20100324, end: 20100602
  3. CONCERTA [Suspect]
     Route: 048
     Dates: start: 20100910
  4. METHYLPHENIDATE [Concomitant]
     Route: 048
     Dates: start: 20101207, end: 20111126
  5. MELATONIN [Concomitant]
     Route: 048
     Dates: start: 20100101, end: 20111026
  6. METHYLPHENIDATE [Concomitant]
     Route: 048
     Dates: start: 20100302, end: 20100324
  7. METHYLPHENIDATE [Concomitant]
     Indication: PRODUCT USED FOR UNKNOWN INDICATION
     Route: 048
     Dates: start: 20100602, end: 20100910
  8. CONCERTA [Suspect]
     Indication: ATTENTION DEFICIT/HYPERACTIVITY DISORDER
     Route: 048
     Dates: start: 20110830, end: 20111026

REACTIONS (1)
  - COMPLETED SUICIDE [None]
